FAERS Safety Report 9056869 (Version 1)
Quarter: 2013Q1

REPORT INFORMATION
  Report Type: Report from Study
  Country: JP (occurrence: JP)
  Receive Date: 20130201
  Receipt Date: 20130201
  Transmission Date: 20140127
  Serious: Yes (Other)
  Sender: FDA-Public Use
  Company Number: JP-GLAXOSMITHKLINE-B0860788A

PATIENT
  Age: 56 None
  Sex: Female
  Weight: 68 kg

DRUGS (10)
  1. TYKERB [Suspect]
     Indication: BREAST CANCER
     Route: 048
     Dates: start: 20110713, end: 20110928
  2. TYKERB [Suspect]
     Indication: BREAST CANCER
     Route: 048
     Dates: start: 20111026, end: 20111207
  3. TYKERB [Suspect]
     Indication: BREAST CANCER
     Route: 048
     Dates: start: 20111228, end: 20120711
  4. TYKERB [Suspect]
     Indication: BREAST CANCER
     Route: 048
     Dates: start: 20120801, end: 20120821
  5. XELODA [Suspect]
     Route: 048
     Dates: start: 20110713, end: 20110914
  6. XELODA [Suspect]
     Route: 048
     Dates: start: 20111005, end: 20111019
  7. XELODA [Suspect]
     Route: 048
     Dates: start: 20111026, end: 20111130
  8. XELODA [Suspect]
     Route: 048
     Dates: start: 20111207, end: 20111221
  9. XELODA [Suspect]
     Route: 048
     Dates: start: 20120208, end: 20120404
  10. XELODA [Suspect]
     Route: 048
     Dates: start: 20120509, end: 20120814

REACTIONS (8)
  - Convulsion [Recovering/Resolving]
  - Convulsion [Recovered/Resolved]
  - Pyrexia [Recovered/Resolved]
  - Erythema [Recovering/Resolving]
  - Hepatic function abnormal [Recovering/Resolving]
  - Diarrhoea [Not Recovered/Not Resolved]
  - Eczema [Recovered/Resolved]
  - Eczema [Recovered/Resolved]
